FAERS Safety Report 11867895 (Version 1)
Quarter: 2015Q4

REPORT INFORMATION
  Report Type: Spontaneous
  Country: JP (occurrence: JP)
  Receive Date: 20151224
  Receipt Date: 20151224
  Transmission Date: 20160305
  Serious: Yes (Other)
  Sender: FDA-Public Use
  Company Number: JP-SA-2015SA216478

PATIENT
  Sex: Female

DRUGS (2)
  1. LANTUS SOLOSTAR [Suspect]
     Active Substance: INSULIN GLARGINE
     Route: 058
  2. SOLOSTAR [Concomitant]
     Active Substance: DEVICE

REACTIONS (1)
  - Haemorrhage [Recovered/Resolved]
